FAERS Safety Report 8796805 (Version 5)
Quarter: 2013Q3

REPORT INFORMATION
  Report Type: Report from Study
  Country: JP (occurrence: JP)
  Receive Date: 20120919
  Receipt Date: 20130815
  Transmission Date: 20140515
  Serious: Yes (Other)
  Sender: FDA-Public Use
  Company Number: JP-VERTEX PHARMACEUTICAL INC.-2012-021439

PATIENT
  Age: 62 Year
  Sex: Female

DRUGS (16)
  1. VX-950 (TELAPREVIR) [Suspect]
     Indication: CHRONIC HEPATITIS C
     Dosage: 1500 MG, QD
     Route: 048
     Dates: start: 20120718, end: 20120828
  2. VX-950 (TELAPREVIR) [Suspect]
     Dosage: 750 MG, QD
     Route: 048
     Dates: start: 20120903, end: 20120909
  3. VX-950 (TELAPREVIR) [Suspect]
     Dosage: 750 MG, QD
     Route: 048
     Dates: start: 20121003, end: 20121016
  4. VX-950 (TELAPREVIR) [Suspect]
     Dosage: 1000 MG, QD
     Route: 048
     Dates: start: 20121017, end: 20121113
  5. REBETOL [Suspect]
     Indication: CHRONIC HEPATITIS C
     Dosage: 600 MG, QD
     Route: 048
     Dates: start: 20120718, end: 20120724
  6. REBETOL [Suspect]
     Dosage: 400 MG, QD
     Route: 048
     Dates: start: 20120725, end: 20120807
  7. REBETOL [Suspect]
     Dosage: 200 MG, QD
     Route: 048
     Dates: start: 20120808, end: 20120828
  8. REBETOL [Suspect]
     Dosage: 200 MG, QD
     Route: 048
     Dates: start: 20120903, end: 20120909
  9. REBETOL [Suspect]
     Dosage: 200 MG, QD
     Route: 048
     Dates: start: 20121003, end: 20121226
  10. PEGINTRON [Suspect]
     Indication: CHRONIC HEPATITIS C
     Dosage: 1.6 ?G/KG, QW
     Route: 058
     Dates: start: 20120718, end: 20120822
  11. PEGINTRON [Suspect]
     Dosage: 1.3 ?G/KG, QW
     Route: 058
     Dates: start: 20120903, end: 20120903
  12. PEGINTRON [Suspect]
     Dosage: 0.98 ?G/KG, QW
     Route: 058
     Dates: start: 20121003, end: 20121031
  13. PEGINTRON [Suspect]
     Dosage: 0.49 ?G/KG, QW
     Route: 058
     Dates: start: 20121107, end: 20121114
  14. PEGINTRON [Suspect]
     Dosage: 0.65 ?G/KG, QW
     Route: 058
     Dates: start: 20121121, end: 20121121
  15. PEGINTRON [Suspect]
     Dosage: 0.81 ?G/KG, QW
     Dates: start: 20121128, end: 20121226
  16. GASTER D [Concomitant]
     Dosage: 20 MG, QD
     Route: 048

REACTIONS (1)
  - Retinopathy [Recovered/Resolved]
